FAERS Safety Report 17165784 (Version 1)
Quarter: 2019Q4

REPORT INFORMATION
  Report Type: Spontaneous
  Country: FR (occurrence: FR)
  Receive Date: 20191217
  Receipt Date: 20191217
  Transmission Date: 20200122
  Serious: Yes (Death, Congenital Anomaly, Other)
  Sender: FDA-Public Use
  Company Number: FR-PFIZER INC-2019540849

PATIENT
  Sex: Female
  Weight: 2.27 kg

DRUGS (14)
  1. INEGY [Suspect]
     Active Substance: EZETIMIBE\SIMVASTATIN
     Dosage: UNK
     Route: 064
     Dates: end: 20150220
  2. ASPEGIC [ACETYLSALICYLIC ACID] [Suspect]
     Active Substance: ASPIRIN
     Dosage: 100 MG, 1X/DAY (MATERNAL DOSE)
     Route: 064
     Dates: end: 20150818
  3. ROVAMYCINE [SPIRAMYCIN ADEPATE] [Suspect]
     Active Substance: SPIRAMYCIN ADIPATE
     Dosage: UNK
     Route: 064
     Dates: start: 20150220, end: 20150818
  4. INSULIN [Suspect]
     Active Substance: INSULIN NOS
     Dosage: UNK
     Route: 064
     Dates: start: 20150220, end: 20150818
  5. NEORAL [Suspect]
     Active Substance: CYCLOSPORINE
     Dosage: 400 MG, 1X/DAY (MATERNAL DOSE. 200 MG, 2X/DAY)
     Route: 064
     Dates: start: 20150220, end: 20150818
  6. PRIMPERAN [Suspect]
     Active Substance: METOCLOPRAMIDE HYDROCHLORIDE
     Dosage: 30 MG, 1X/DAY (MATERNAL DOSE, 10 MG 3X/DAY)
     Route: 064
     Dates: start: 20150220, end: 20150818
  7. PROZAC [Suspect]
     Active Substance: FLUOXETINE HYDROCHLORIDE
     Dosage: 20 MG, 1X/DAY (MATERNAL DOSE)
     Route: 064
     Dates: start: 20150220, end: 20150818
  8. TARDYFERON B9 [FERROUS SULFATE;FOLIC ACID;MUCOPROTEOSE] [Suspect]
     Active Substance: FERROUS SULFATE\FOLIC ACID\GASTRIC MUCIN
     Dosage: 2 DF, 1X/DAY (MATERNAL DOSE)
     Route: 064
     Dates: end: 20150818
  9. SPIRONOLACTONE. [Suspect]
     Active Substance: SPIRONOLACTONE
     Dosage: UNK
     Route: 064
     Dates: start: 20150220
  10. ZYMAD [Suspect]
     Active Substance: CHOLECALCIFEROL
     Dosage: 20000 IU, MONTHLY
     Route: 064
     Dates: end: 20150818
  11. SODIUM BICARBONATE. [Suspect]
     Active Substance: SODIUM BICARBONATE
     Dosage: 2 G, 1X/DAY (MATERNAL DOSE, 1G 2X/DAY)
     Route: 064
     Dates: start: 20150220, end: 20150818
  12. TRIATEC [LOSARTAN POTASSIUM] [Suspect]
     Active Substance: LOSARTAN POTASSIUM
     Dosage: UNK
     Route: 064
     Dates: end: 20150220
  13. APROVEL [Suspect]
     Active Substance: IRBESARTAN
     Dosage: UNK
     Route: 064
     Dates: end: 20150220
  14. ATARAX [HYDROXYZINE EMBONATE] [Suspect]
     Active Substance: HYDROXYZINE PAMOATE
     Dosage: 25 MG, 1X/DAY (MATERNAL DOSE)
     Route: 064
     Dates: start: 20150220, end: 20150818

REACTIONS (7)
  - Congenital musculoskeletal anomaly [Not Recovered/Not Resolved]
  - Dysmorphism [Not Recovered/Not Resolved]
  - Talipes [Not Recovered/Not Resolved]
  - Maternal exposure during pregnancy [Unknown]
  - Low birth weight baby [Unknown]
  - Multiple organ dysfunction syndrome [Fatal]
  - Disseminated intravascular coagulation [Fatal]

NARRATIVE: CASE EVENT DATE: 20150220
